FAERS Safety Report 21418521 (Version 2)
Quarter: 2022Q4

REPORT INFORMATION
  Report Type: Spontaneous
  Country: JP (occurrence: JP)
  Receive Date: 20221006
  Receipt Date: 20221012
  Transmission Date: 20230112
  Serious: Yes (Other)
  Sender: FDA-Public Use
  Company Number: JP-JNJFOC-20220962007

PATIENT
  Sex: Male

DRUGS (1)
  1. OPSUMIT [Suspect]
     Active Substance: MACITENTAN
     Indication: Portopulmonary hypertension
     Dosage: DOSE UNKNOWN
     Route: 048

REACTIONS (3)
  - Hepatic cirrhosis [Unknown]
  - Portopulmonary hypertension [Unknown]
  - Dyspnoea [Recovering/Resolving]
